FAERS Safety Report 7742061-8 (Version None)
Quarter: 2011Q3

REPORT INFORMATION
  Report Type: 
  Country: None (occurrence: None)
  Receive Date: 20110912
  Receipt Date: 20110905
  Transmission Date: 20111222
  Serious: Yes (Death)
  Sender: FDA-Public Use
  Company Number: PHHY2011JP79786

PATIENT
  Age: 91 Year
  Sex: Female

DRUGS (5)
  1. RASILEZ [Suspect]
     Indication: HYPERTENSION
     Dosage: 150 MG, UNK
     Route: 048
     Dates: start: 20110126
  2. DESPA [Concomitant]
     Dosage: 0.5 MG, UNK
     Route: 048
     Dates: start: 20061113
  3. ANTIBIOTICS [Concomitant]
  4. SYMMETREL [Concomitant]
     Dosage: 50 MG, UNK
     Route: 048
     Dates: start: 20070119
  5. MAGNESIUM OXIDE [Concomitant]
     Dosage: 1 G, UNK
     Route: 048
     Dates: start: 20061113

REACTIONS (3)
  - DYSPHAGIA [None]
  - PNEUMONIA [None]
  - RESPIRATORY FAILURE [None]
